FAERS Safety Report 7081825-3 (Version None)
Quarter: 2010Q4

REPORT INFORMATION
  Report Type: 
  Country: None (occurrence: None)
  Receive Date: 20101103
  Receipt Date: 20101029
  Transmission Date: 20110411
  Serious: Yes (Death)
  Sender: FDA-Public Use
  Company Number: US-GILEAD-2010-0032917

PATIENT
  Sex: Female

DRUGS (12)
  1. LETAIRIS [Suspect]
     Indication: PULMONARY ARTERIAL HYPERTENSION
     Route: 048
     Dates: start: 20081201, end: 20101023
  2. ASPIRIN [Concomitant]
  3. PLAVIX [Concomitant]
  4. METOPROLOL [Concomitant]
  5. PROCARDIA XL [Concomitant]
  6. SYNTHROID [Concomitant]
  7. OMEPRAZOLE [Concomitant]
  8. PREDNISOLONE [Concomitant]
  9. PENTOXIFYLLINE [Concomitant]
  10. HYDROCODONE BITARTRATE AND ACETAMINOPHEN [Concomitant]
  11. COLACE [Concomitant]
  12. VESICARE [Concomitant]

REACTIONS (1)
  - ACUTE MYOCARDIAL INFARCTION [None]
